FAERS Safety Report 7545496-1 (Version None)
Quarter: 2011Q2

REPORT INFORMATION
  Report Type: 
  Country: None (occurrence: None)
  Receive Date: 20110525
  Receipt Date: 20110207
  Transmission Date: 20111010
  Serious: No
  Sender: FDA-Public Use
  Company Number: 323560

PATIENT
  Age: 46 Year
  Sex: Female

DRUGS (6)
  1. PERASTAN /00011701/ (CHLORAMPHENICOL) [Concomitant]
  2. JANUVIA [Concomitant]
  3. COZAAR [Concomitant]
  4. CYMBALTA [Concomitant]
  5. VICTOZA [Suspect]
     Indication: TYPE 2 DIABETES MELLITUS
     Dosage: 1.2 MG, QD, SUBCUTANEOUS
     Route: 058
  6. METFORMIN HCL [Concomitant]

REACTIONS (2)
  - HUNGER [None]
  - WEIGHT INCREASED [None]
